FAERS Safety Report 10273908 (Version 1)
Quarter: 2014Q3

REPORT INFORMATION
  Report Type: Report from Study
  Country: US (occurrence: US)
  Receive Date: 20140702
  Receipt Date: 20140702
  Transmission Date: 20150326
  Serious: Yes (Other)
  Sender: FDA-Public Use
  Company Number: US-BRISTOL-MYERS SQUIBB COMPANY-21075783

PATIENT
  Age: 76 Year
  Sex: Female
  Weight: 77.1 kg

DRUGS (1)
  1. COUMADIN [Suspect]
     Active Substance: WARFARIN SODIUM
     Dates: start: 2008

REACTIONS (2)
  - Weight decreased [Unknown]
  - Atrial fibrillation [Unknown]
